FAERS Safety Report 5209533-1 (Version None)
Quarter: 2006Q4

REPORT INFORMATION
  Report Type: 
  Country: None (occurrence: None)
  Receive Date: 20061101
  Receipt Date: 20060831
  Transmission Date: 20070319
  Serious: No
  Sender: FDA-Public Use
  Company Number: 2006PV020515

PATIENT
  Age: 60 Year
  Sex: Female
  Weight: 85.7298 kg

DRUGS (7)
  1. SYMLIN [Suspect]
     Dosage: SEE IMAGE, SC
     Route: 058
     Dates: start: 20060712, end: 20060701
  2. SYMLIN [Suspect]
     Dosage: SEE IMAGE, SC
     Route: 058
     Dates: start: 20060701
  3. NOVOLOG [Concomitant]
  4. LANTUS [Concomitant]
  5. GLUCOPHAGE [Concomitant]
  6. PAXIL [Concomitant]
  7. CINNAMON [Concomitant]

REACTIONS (6)
  - BLOOD GLUCOSE DECREASED [None]
  - DECREASED APPETITE [None]
  - DRUG INEFFECTIVE [None]
  - NAUSEA [None]
  - TREMOR [None]
  - WEIGHT DECREASED [None]
